FAERS Safety Report 9183171 (Version 1)
Quarter: 2013Q1

REPORT INFORMATION
  Report Type: Spontaneous
  Country: US (occurrence: US)
  Receive Date: 20130322
  Receipt Date: 20130322
  Transmission Date: 20140127
  Serious: Yes (Other)
  Sender: FDA-Public Use
  Company Number: US-BRISTOL-MYERS SQUIBB COMPANY-16387995

PATIENT
  Age: 70 Year
  Sex: Female

DRUGS (3)
  1. ERBITUX [Suspect]
     Indication: RECTAL CANCER METASTATIC
     Route: 042
     Dates: start: 20111013
  2. AVASTIN [Suspect]
  3. IRINOTECAN [Suspect]
     Route: 042
     Dates: start: 20111013

REACTIONS (1)
  - Conjunctivitis [Recovered/Resolved]
